FAERS Safety Report 9010980 (Version 3)
Quarter: 2013Q1

REPORT INFORMATION
  Report Type: Spontaneous
  Country: US (occurrence: US)
  Receive Date: 20130111
  Receipt Date: 20130211
  Transmission Date: 20140127
  Serious: Yes (Other)
  Sender: FDA-Public Use
  Company Number: PHEH2013US000801

PATIENT
  Age: 51 Year
  Sex: Female
  Weight: 114 kg

DRUGS (3)
  1. GILENYA [Suspect]
     Indication: MULTIPLE SCLEROSIS
     Dosage: 0.5 MG, QD
     Route: 048
     Dates: end: 20130129
  2. VICODIN [Concomitant]
     Indication: PAIN
     Route: 048
  3. GABAPENTIN [Concomitant]
     Indication: PAIN
     Route: 048

REACTIONS (3)
  - Breast cancer [Recovering/Resolving]
  - Mass [Unknown]
  - Lymphocyte count decreased [Unknown]
